FAERS Safety Report 8767606 (Version 1)
Quarter: 2012Q4

REPORT INFORMATION
  Report Type: 
  Country: US (occurrence: US)
  Receive Date: 20120904
  Receipt Date: 20120904
  Transmission Date: 20130627
  Serious: No
  Sender: FDA-Public Use
  Company Number: US-PFIZER INC-2012214215

PATIENT
  Age: 55 Year
  Sex: Male

DRUGS (3)
  1. CARDURA [Suspect]
     Indication: BLOOD PRESSURE MANAGEMENT
     Dosage: UNK
     Dates: start: 2003
  2. NORVASC [Suspect]
     Indication: BLOOD PRESSURE MANAGEMENT
     Dosage: UNK
     Dates: start: 2010, end: 2011
  3. LISINOPRIL [Suspect]
     Indication: BLOOD PRESSURE MANAGEMENT
     Dosage: UNK
     Dates: start: 2008, end: 2010

REACTIONS (1)
  - Drug ineffective [Unknown]
